FAERS Safety Report 9639788 (Version 1)
Quarter: 2013Q4

REPORT INFORMATION
  Report Type: Spontaneous
  Country: US (occurrence: None)
  Receive Date: 20131021
  Receipt Date: 20131021
  Transmission Date: 20140711
  Serious: No
  Sender: FDA-Public Use
  Company Number: None

PATIENT
  Age: 47 Year
  Sex: Female

DRUGS (1)
  1. LEVAQUIN [Suspect]
     Indication: SINUSITIS
     Dosage: TAKEN BY MOUTH
     Dates: start: 20131016, end: 20131017

REACTIONS (9)
  - Dizziness [None]
  - Vision blurred [None]
  - Nausea [None]
  - Vomiting [None]
  - Hallucination [None]
  - Loss of consciousness [None]
  - Paraesthesia [None]
  - Neuralgia [None]
  - Inappropriate schedule of drug administration [None]
